FAERS Safety Report 5368487-8 (Version None)
Quarter: 2007Q2

REPORT INFORMATION
  Report Type: 
  Country: None (occurrence: None)
  Receive Date: 20070625
  Receipt Date: 20070608
  Transmission Date: 20071010
  Serious: Yes (Hospitalization)
  Sender: FDA-Public Use
  Company Number: CA-GENENTECH-227314

PATIENT
  Sex: Male

DRUGS (8)
  1. BEVACIZUMAB [Suspect]
     Indication: COLON CANCER
     Dosage: 769 MG, Q2W
     Route: 042
     Dates: start: 20060412
  2. OXALIPLATIN [Suspect]
     Indication: COLON CANCER
     Dosage: 185 MG, Q2W
     Route: 042
     Dates: start: 20051012
  3. FLUOROURACIL [Suspect]
     Indication: COLON CANCER
     Dosage: 872 MG, Q2W
     Route: 042
     Dates: start: 20051012
  4. LEUCOVORIN CALCIUM [Suspect]
     Indication: COLON CANCER
     Dosage: 436 MG, Q2W
     Route: 042
     Dates: start: 20051012
  5. IRON [Concomitant]
     Indication: DRUG USE FOR UNKNOWN INDICATION
     Dates: start: 20050815
  6. MULTIVITAMIN NOS [Concomitant]
     Indication: DRUG USE FOR UNKNOWN INDICATION
     Dates: start: 20050815
  7. RANITIDINE [Concomitant]
     Indication: DRUG USE FOR UNKNOWN INDICATION
     Dates: start: 20051115
  8. FRAGMIN [Concomitant]
     Indication: DRUG USE FOR UNKNOWN INDICATION
     Dates: start: 20060314

REACTIONS (2)
  - INFECTION [None]
  - THROMBOSIS [None]
